FAERS Safety Report 24386108 (Version 1)
Quarter: 2024Q4

REPORT INFORMATION
  Report Type: Spontaneous
  Country: FR (occurrence: FR)
  Receive Date: 20241001
  Receipt Date: 20241001
  Transmission Date: 20250115
  Serious: Yes (Hospitalization, Other)
  Sender: B BRAUN
  Company Number: FR-B.Braun Medical Inc.-2162298

PATIENT
  Age: 24 Year
  Sex: Male
  Weight: 133 kg

DRUGS (16)
  1. ACETAMINOPHEN [Suspect]
     Active Substance: ACETAMINOPHEN
     Indication: Pain
  2. FLUCONAZOLE [Suspect]
     Active Substance: FLUCONAZOLE
  3. ASPIRIN [Concomitant]
     Active Substance: ASPIRIN
  4. PHLOROGLUCINOL;TRIME THYLPHLOROGLUCINOL [Concomitant]
  5. NICOTINE [Concomitant]
     Active Substance: NICOTINE
  6. PHLOROGLUCINOL [Concomitant]
     Active Substance: PHLOROGLUCINOL
  7. HEPARIN [Concomitant]
     Active Substance: HEPARIN SODIUM
  8. BISOPROLOL FUMARATE [Concomitant]
     Active Substance: BISOPROLOL FUMARATE
  9. DARBEPOETIN ALFA [Concomitant]
     Active Substance: DARBEPOETIN ALFA
  10. TRAMADOL HYDROCHLORIDE [Concomitant]
     Active Substance: TRAMADOL HYDROCHLORIDE
  11. ONDANSETRON [Concomitant]
     Active Substance: ONDANSETRON
  12. METOCLOPRAMIDE [Concomitant]
     Active Substance: METOCLOPRAMIDE
  13. PAROXETINE [Suspect]
     Active Substance: PAROXETINE
  14. FUROSEMIDE [Suspect]
     Active Substance: FUROSEMIDE
  15. ERTAPENEM SODIUM [Suspect]
     Active Substance: ERTAPENEM SODIUM
  16. PANTOPRAZOLE [Suspect]
     Active Substance: PANTOPRAZOLE

REACTIONS (2)
  - Neutropenia [Not Recovered/Not Resolved]
  - Anaemia [Not Recovered/Not Resolved]
